FAERS Safety Report 6522199-3 (Version None)
Quarter: 2009Q4

REPORT INFORMATION
  Report Type: 
  Country: None (occurrence: None)
  Receive Date: 20091230
  Receipt Date: 20091218
  Transmission Date: 20100525
  Serious: Yes (Other)
  Sender: FDA-Public Use
  Company Number: SG-PFIZER INC-2009312866

PATIENT
  Age: 61 Year
  Sex: Female

DRUGS (3)
  1. GLIPIZIDE [Suspect]
  2. SIMVASTATIN [Suspect]
  3. GLUCOPHAGE [Suspect]

REACTIONS (1)
  - VISION BLURRED [None]
